FAERS Safety Report 5287916-1 (Version None)
Quarter: 2007Q2

REPORT INFORMATION
  Report Type: 
  Country: None (occurrence: None)
  Receive Date: 20070403
  Receipt Date: 20070403
  Transmission Date: 20071010
  Serious: Yes (Hospitalization)
  Sender: FDA-Public Use
  Company Number: None

PATIENT
  Age: 40 Year
  Sex: Female
  Weight: 68.0396 kg

DRUGS (2)
  1. FACTIVE [Suspect]
     Indication: INFLUENZA LIKE ILLNESS
     Dosage: 1  320 MG TABLET ONCE A DAY PO
     Route: 048
     Dates: start: 20070124, end: 20070124
  2. FACTIVE [Suspect]
     Indication: UPPER RESPIRATORY TRACT INFECTION
     Dosage: 1  320 MG TABLET ONCE A DAY PO
     Route: 048
     Dates: start: 20070124, end: 20070124

REACTIONS (5)
  - EYE SWELLING [None]
  - PRURITUS [None]
  - THROAT IRRITATION [None]
  - TONGUE DISORDER [None]
  - URTICARIA [None]
